FAERS Safety Report 19178696 (Version 1)
Quarter: 2021Q2

REPORT INFORMATION
  Report Type: Spontaneous
  Country: US (occurrence: US)
  Receive Date: 20210421
  Receipt Date: 20210421
  Transmission Date: 20210717
  Serious: Yes (Disabling, Other)
  Sender: FDA-Public Use
  Company Number: None

PATIENT
  Age: 39 Year
  Sex: Female
  Weight: 69.3 kg

DRUGS (7)
  1. OXYCODON?ACETAMINOPHEN 10/325 GENERIC OR EQUIVALENT TO PERCOCET [Suspect]
     Active Substance: ACETAMINOPHEN\OXYCODONE HYDROCHLORIDE
     Indication: SPINAL FUSION SURGERY
     Dosage: ?          QUANTITY:90 TABLET(S);?
     Route: 048
     Dates: start: 20210406, end: 20210420
  2. PROMETHAZINE [Concomitant]
     Active Substance: PROMETHAZINE HYDROCHLORIDE
  3. NECON [Concomitant]
     Active Substance: ETHINYL ESTRADIOL\NORETHINDRONE
  4. ALEVE [Concomitant]
     Active Substance: NAPROXEN SODIUM
  5. SINGULAIR [Concomitant]
     Active Substance: MONTELUKAST SODIUM
  6. CLAIRITON [Concomitant]
  7. LOSARTAN. [Concomitant]
     Active Substance: LOSARTAN

REACTIONS (9)
  - Abdominal pain [None]
  - Somnolence [None]
  - Pain [None]
  - Hyperhidrosis [None]
  - Headache [None]
  - Vomiting [None]
  - Diarrhoea [None]
  - Pyrexia [None]
  - Drug ineffective [None]

NARRATIVE: CASE EVENT DATE: 20210406
